FAERS Safety Report 5390887-0 (Version None)
Quarter: 2007Q3

REPORT INFORMATION
  Report Type: 
  Country: None (occurrence: None)
  Receive Date: 20070716
  Receipt Date: 20070710
  Transmission Date: 20080115
  Serious: Yes (Death)
  Sender: FDA-Public Use
  Company Number: 2007SP013909

PATIENT
  Age: 52 Year
  Sex: Male

DRUGS (1)
  1. TEMODAR [Suspect]
     Indication: MALIGNANT MELANOMA
     Dosage: 100 MG; QD; PO
     Route: 048

REACTIONS (2)
  - COMA [None]
  - DRUG INTOLERANCE [None]
